FAERS Safety Report 25664373 (Version 1)
Quarter: 2025Q3

REPORT INFORMATION
  Report Type: Report from Study
  Country: US (occurrence: US)
  Receive Date: 20250811
  Receipt Date: 20250811
  Transmission Date: 20251020
  Serious: Yes (Other)
  Sender: BIOCON
  Company Number: US-BIOCON-BCN-2025-000236

PATIENT
  Age: 26 Year

DRUGS (1)
  1. TORPENZ [Suspect]
     Active Substance: EVEROLIMUS
     Indication: Tuberous sclerosis complex
     Dosage: SWALLOW WHOLE WITH A GLASS OF WATER.
     Route: 048
     Dates: start: 20250613

REACTIONS (2)
  - Seizure [Not Recovered/Not Resolved]
  - Impaired driving ability [Not Recovered/Not Resolved]
